FAERS Safety Report 9475162 (Version 1)
Quarter: 2013Q3

REPORT INFORMATION
  Report Type: Spontaneous
  Country: GB (occurrence: GB)
  Receive Date: 20130824
  Receipt Date: 20130824
  Transmission Date: 20140515
  Serious: Yes (Disabling)
  Sender: FDA-Public Use
  Company Number: PHHY2013GB089848

PATIENT
  Age: 22 Year
  Sex: Male
  Weight: 63.5 kg

DRUGS (2)
  1. CITALOPRAM [Suspect]
     Indication: PANIC ATTACK
     Dosage: 10 MG, QD
     Route: 048
     Dates: start: 200912, end: 201102
  2. CITALOPRAM [Suspect]
     Indication: ANXIETY

REACTIONS (1)
  - Sexual dysfunction [Not Recovered/Not Resolved]
